FAERS Safety Report 23450804 (Version 1)
Quarter: 2024Q1

REPORT INFORMATION
  Report Type: Other
  Country: GB (occurrence: GB)
  Receive Date: 20240129
  Receipt Date: 20240129
  Transmission Date: 20240410
  Serious: Yes (Other)
  Sender: FDA-Public Use
  Company Number: None

PATIENT

DRUGS (10)
  1. EZETIMIBE [Suspect]
     Active Substance: EZETIMIBE
     Indication: Cardiovascular event prophylaxis
     Dosage: UNK
     Route: 065
     Dates: start: 20240116
  2. CHLORAMPHENICOL [Concomitant]
     Active Substance: CHLORAMPHENICOL
     Indication: Ill-defined disorder
     Dosage: 1 DROP, (PUT ONE DROP INTO BOTH EYE(S) EVERY TWO HOURS)
     Route: 065
     Dates: start: 20240111
  3. ENALAPRIL [Concomitant]
     Active Substance: ENALAPRIL
     Indication: Ill-defined disorder
     Dosage: 1 DOSAGE FORM, QD (ONE TO BE TAKEN EACH DAY )
     Route: 065
     Dates: start: 20220831
  4. EZETIMIBE [Concomitant]
     Active Substance: EZETIMIBE
     Indication: Ill-defined disorder
     Dosage: 1 DOSAGE FORM, OD (TAKE ONE TABLET ONCE A DAY)
     Route: 065
     Dates: start: 20231220, end: 20240111
  5. GLICLAZIDE [Concomitant]
     Active Substance: GLICLAZIDE
     Indication: Ill-defined disorder
     Dosage: 1 DOSAGE FORM, BID (ONE TO BE TAKEN TWICE A DAY WITH FOOD )
     Route: 065
     Dates: start: 20220831
  6. METFORMIN [Concomitant]
     Active Substance: METFORMIN HYDROCHLORIDE
     Indication: Ill-defined disorder
     Dosage: 2 DOSAGE FORM, BID
     Route: 065
     Dates: start: 20220831
  7. OMEPRAZOLE [Concomitant]
     Active Substance: OMEPRAZOLE
     Indication: Ill-defined disorder
     Dosage: 1 DOSAGE FORM, QD (ONE TO BE TAKEN EACH DAY )
     Route: 065
     Dates: start: 20220831
  8. ACETAMINOPHEN [Concomitant]
     Active Substance: ACETAMINOPHEN
     Indication: Ill-defined disorder
     Dosage: 2 DOSAGE FORM (TWO TO BE TAKEN EVERY 4-6 HOURS UP TO FOUR TIME..)
     Route: 065
     Dates: start: 20220831
  9. SITAGLIPTIN [Concomitant]
     Active Substance: SITAGLIPTIN
     Indication: Ill-defined disorder
     Dosage: 1 DOSAGE FORM, QD (ONE TO BE TAKEN EACH DAY )
     Route: 065
     Dates: start: 20220831
  10. ACETAMINOPHEN\CODEINE PHOSPHATE [Concomitant]
     Active Substance: ACETAMINOPHEN\CODEINE PHOSPHATE
     Indication: Ill-defined disorder
     Dosage: UNK, PRN (ONE OR TWO TO BE TAKEN FOUR TIMES A DAY WHEN RE..)
     Route: 065
     Dates: start: 20220831, end: 20240111

REACTIONS (5)
  - Adverse drug reaction [Recovering/Resolving]
  - Eye pain [Recovering/Resolving]
  - Eye swelling [Unknown]
  - Ocular hyperaemia [Unknown]
  - Eye discharge [Unknown]

NARRATIVE: CASE EVENT DATE: 20240101
